FAERS Safety Report 5794703-4 (Version None)
Quarter: 2008Q2

REPORT INFORMATION
  Report Type: 
  Country: None (occurrence: None)
  Receive Date: 20080630
  Receipt Date: 20080624
  Transmission Date: 20081010
  Serious: Yes (Life-Threatening)
  Sender: FDA-Public Use
  Company Number: US-MERCK-0805USA05958

PATIENT
  Age: 10 Year
  Sex: Male
  Weight: 63 kg

DRUGS (2)
  1. SINGULAIR [Suspect]
     Indication: RHINITIS ALLERGIC
     Route: 048
     Dates: start: 20071211, end: 20080517
  2. SINGULAIR [Suspect]
     Indication: ASTHMA
     Route: 048
     Dates: start: 20071211, end: 20080517

REACTIONS (2)
  - OVERDOSE [None]
  - SUICIDAL IDEATION [None]
